FAERS Safety Report 7549693-0 (Version None)
Quarter: 2011Q2

REPORT INFORMATION
  Report Type: 
  Country: None (occurrence: None)
  Receive Date: 20110615
  Receipt Date: 20110601
  Transmission Date: 20111010
  Serious: Yes (Hospitalization)
  Sender: FDA-Public Use
  Company Number: FR-JNJFOC-20100809138

PATIENT
  Sex: Female
  Weight: 71 kg

DRUGS (3)
  1. REMICADE [Suspect]
     Route: 042
     Dates: start: 20091112
  2. REMICADE [Suspect]
     Indication: CROHN'S DISEASE
     Route: 042
     Dates: start: 20091207
  3. REMICADE [Suspect]
     Route: 042
     Dates: start: 20050101, end: 20070101

REACTIONS (4)
  - OCULAR HYPERAEMIA [None]
  - PNEUMONIA [None]
  - EYE PAIN [None]
  - LUNG DISORDER [None]
